FAERS Safety Report 21326188 (Version 2)
Quarter: 2023Q1

REPORT INFORMATION
  Report Type: Other
  Country: US (occurrence: None)
  Receive Date: 20220913
  Receipt Date: 20230301
  Transmission Date: 20230417
  Serious: Yes (Other)
  Sender: FDA-Public Use
  Company Number: US-ROCHE-3164888

PATIENT
  Sex: Female

DRUGS (3)
  1. PULMOZYME [Suspect]
     Active Substance: DORNASE ALFA
     Indication: Cystic fibrosis
     Dosage: SOLUTION, NEBULIZE THE CONTENTS OF 1 VIALS EVERY DAY
     Route: 065
  2. PULMOZYME [Suspect]
     Active Substance: DORNASE ALFA
     Dosage: AMPUL, NEBULIZE THE CONTENTS OF 1 VIALS EVERY DAY
     Route: 065
  3. VENCLEXTA [Concomitant]
     Active Substance: VENETOCLAX

REACTIONS (2)
  - Off label use [Unknown]
  - Myelodysplastic syndrome [Unknown]
